FAERS Safety Report 15689919 (Version 1)
Quarter: 2018Q4

REPORT INFORMATION
  Report Type: Other
  Country: ES (occurrence: ES)
  Receive Date: 20181205
  Receipt Date: 20181205
  Transmission Date: 20190205
  Serious: Yes (Other)
  Sender: FDA-Public Use
  Company Number: ES-CELLTRION INC.-2018ES024107

PATIENT

DRUGS (2)
  1. INFLIXIMAB (UNKNOWN) [Suspect]
     Active Substance: INFLIXIMAB
     Indication: ANKYLOSING SPONDYLITIS
     Dosage: 4.5 MG/KG
     Route: 042
     Dates: start: 20090330, end: 20090330
  2. INFLIXIMAB (UNKNOWN) [Suspect]
     Active Substance: INFLIXIMAB
     Dosage: 4.5 MG/KG
     Route: 042
     Dates: start: 20180920, end: 20180920

REACTIONS (3)
  - Inappropriate schedule of product administration [Unknown]
  - Underdose [Unknown]
  - Thyroid cancer [Recovering/Resolving]

NARRATIVE: CASE EVENT DATE: 20171128
